FAERS Safety Report 7620771-0 (Version None)
Quarter: 2011Q3

REPORT INFORMATION
  Report Type: 
  Country: None (occurrence: None)
  Receive Date: 20110719
  Receipt Date: 20110707
  Transmission Date: 20111222
  Serious: Yes (Hospitalization)
  Sender: FDA-Public Use
  Company Number: DE-ALEXION-A201101039

PATIENT
  Sex: Male

DRUGS (8)
  1. KEPPRA [Suspect]
     Indication: CONVULSION
     Dosage: 500 MG, BID
     Dates: start: 20110614
  2. METOPROLOL SUCCINATE [Concomitant]
     Indication: HYPERTONIA
     Dosage: 95 MG, BID
     Dates: start: 20110605, end: 20110621
  3. AZITHROMYCIN [Suspect]
     Indication: ANTIBIOTIC PROPHYLAXIS
     Dosage: 500 MG, QD
     Dates: start: 20110620
  4. MENINGOCOCCAL VACCINE [Concomitant]
     Dosage: UNK
     Route: 030
     Dates: start: 20110606, end: 20110606
  5. METOPROLOL SUCCINATE [Concomitant]
     Dosage: 95 MG, QD
     Dates: start: 20110622, end: 20110706
  6. SOLIRIS [Suspect]
     Dosage: 1200 MG, SINGLE
     Route: 042
     Dates: start: 20110623, end: 20110623
  7. SOLIRIS [Suspect]
     Indication: HAEMOLYTIC URAEMIC SYNDROME
     Dosage: 900 MG, QW
     Route: 042
     Dates: start: 20110527, end: 20110617
  8. MENINGOCOCCAL VACCINE [Concomitant]
     Indication: IMMUNISATION
     Dosage: UNK
     Route: 030
     Dates: start: 20110603, end: 20110603

REACTIONS (1)
  - RASH MACULO-PAPULAR [None]
